FAERS Safety Report 7116091-3 (Version None)
Quarter: 2010Q4

REPORT INFORMATION
  Report Type: 
  Country: None (occurrence: None)
  Receive Date: 20101122
  Receipt Date: 20101111
  Transmission Date: 20110411
  Serious: Yes (Other)
  Sender: FDA-Public Use
  Company Number: US-ROCHE-742570

PATIENT
  Sex: Female

DRUGS (1)
  1. XELODA [Suspect]
     Indication: RECURRENT CANCER
     Route: 065
     Dates: start: 20100625

REACTIONS (1)
  - CARCINOEMBRYONIC ANTIGEN INCREASED [None]
